FAERS Safety Report 10472506 (Version 1)
Quarter: 2014Q3

REPORT INFORMATION
  Report Type: Report from Study
  Country: DE (occurrence: DE)
  Receive Date: 20140924
  Receipt Date: 20140924
  Transmission Date: 20150326
  Serious: Yes (Other)
  Sender: FDA-Public Use
  Company Number: PHHY2014DE120760

PATIENT
  Age: 1 Day
  Sex: Male

DRUGS (6)
  1. CELEBREX [Suspect]
     Active Substance: CELECOXIB
     Dosage: UNK UKN, UNK
     Route: 064
     Dates: start: 20120923, end: 20130705
  2. VOLTAREN [Suspect]
     Active Substance: DICLOFENAC SODIUM
     Dosage: UNK UKN, UNK
     Route: 064
     Dates: start: 20120923, end: 20130705
  3. TRAMAL [Concomitant]
     Active Substance: TRAMADOL
     Dosage: UNK UKN, UNK
     Route: 064
     Dates: start: 20120923, end: 20130705
  4. OMEP [Concomitant]
     Active Substance: OMEPRAZOLE
     Dosage: UNK UKN, UNK
     Route: 064
     Dates: start: 20120923, end: 20130705
  5. BUSCOPAN [Concomitant]
     Active Substance: BUTYLSCOPOLAMINE BROMIDE
     Route: 064
  6. FRISIUM [Concomitant]
     Active Substance: CLOBAZAM
     Dosage: UNK UKN, UNK
     Route: 064
     Dates: start: 20120923, end: 20130430

REACTIONS (4)
  - Ductus arteriosus premature closure [Unknown]
  - Persistent foetal circulation [Recovered/Resolved]
  - Right ventricular hypertrophy [Recovered/Resolved]
  - Atrial septal defect [Unknown]

NARRATIVE: CASE EVENT DATE: 20130705
